FAERS Safety Report 21979791 (Version 2)
Quarter: 2023Q2

REPORT INFORMATION
  Report Type: Spontaneous
  Country: IT (occurrence: IT)
  Receive Date: 20230210
  Receipt Date: 20230420
  Transmission Date: 20230721
  Serious: Yes (Other)
  Sender: FDA-Public Use
  Company Number: IT-PFIZER INC-PV202300021607

PATIENT
  Age: 60 Year
  Sex: Female

DRUGS (2)
  1. TOZINAMERAN [Suspect]
     Active Substance: TOZINAMERAN
     Indication: COVID-19 immunisation
     Dosage: DOSE 1, SINGLE
  2. METHOTREXATE SODIUM [Suspect]
     Active Substance: METHOTREXATE SODIUM
     Dosage: 10 MG, WEEKLY
     Route: 058

REACTIONS (5)
  - Cross sensitivity reaction [Recovered/Resolved]
  - Rash erythematous [Recovered/Resolved]
  - Periorbital oedema [Recovered/Resolved]
  - Skin disorder [Recovered/Resolved]
  - Exostosis [Recovered/Resolved]
